FAERS Safety Report 4851577-3 (Version None)
Quarter: 2005Q4

REPORT INFORMATION
  Report Type: 
  Country: None (occurrence: None)
  Receive Date: 20051212
  Receipt Date: 20051129
  Transmission Date: 20060501
  Serious: Yes (Other)
  Sender: FDA-Public Use
  Company Number: CA-ROCHE-426865

PATIENT
  Age: 45 Year
  Sex: Female
  Weight: 76 kg

DRUGS (4)
  1. ROCEPHIN [Suspect]
     Indication: DRUG USE FOR UNKNOWN INDICATION
     Dosage: DOSE DURATION REPORTED AS 12 DAY(S)
     Route: 042
  2. GABAPENTIN [Concomitant]
     Route: 048
  3. ADVIL LIQUI-GELS [Concomitant]
  4. ASPIRIN [Concomitant]

REACTIONS (7)
  - ARTHRALGIA [None]
  - CHILLS [None]
  - MYALGIA [None]
  - PYREXIA [None]
  - RASH MACULAR [None]
  - SKIN BURNING SENSATION [None]
  - TREMOR [None]
